FAERS Safety Report 14327461 (Version 3)
Quarter: 2018Q2

REPORT INFORMATION
  Report Type: Report from Study
  Country: US (occurrence: US)
  Receive Date: 20171227
  Receipt Date: 20180625
  Transmission Date: 20180711
  Serious: No
  Sender: FDA-Public Use
  Company Number: PHEH2017US041130

PATIENT
  Age: 60 Year
  Sex: Female
  Weight: 86.18 kg

DRUGS (1)
  1. GLATOPA [Suspect]
     Active Substance: GLATIRAMER ACETATE
     Indication: MULTIPLE SCLEROSIS
     Dosage: 20 MG, ROTATES ALL SITES
     Route: 058
     Dates: start: 20170830

REACTIONS (10)
  - Injection site haemorrhage [Not Recovered/Not Resolved]
  - Pain in extremity [Not Recovered/Not Resolved]
  - Dyskinesia [Not Recovered/Not Resolved]
  - Chills [Not Recovered/Not Resolved]
  - Hypoaesthesia [Not Recovered/Not Resolved]
  - Chest discomfort [Not Recovered/Not Resolved]
  - Tremor [Not Recovered/Not Resolved]
  - Injection site mass [Not Recovered/Not Resolved]
  - Flushing [Not Recovered/Not Resolved]
  - Muscle spasms [Not Recovered/Not Resolved]

NARRATIVE: CASE EVENT DATE: 20170830
